FAERS Safety Report 26169136 (Version 1)
Quarter: 2025Q4

REPORT INFORMATION
  Report Type: Spontaneous
  Country: CN (occurrence: CN)
  Receive Date: 20251217
  Receipt Date: 20251217
  Transmission Date: 20260117
  Serious: Yes (Other)
  Sender: NOVARTIS
  Company Number: CN-002147023-NVSC2025CN191455

PATIENT
  Age: 76 Year
  Sex: Male

DRUGS (1)
  1. TASIGNA [Suspect]
     Active Substance: NILOTINIB
     Indication: Chronic myeloid leukaemia
     Dosage: 600 MG
     Route: 048
     Dates: start: 20220906

REACTIONS (4)
  - Cerebral infarction [Unknown]
  - Cerebrovascular accident [Unknown]
  - Paralysis [Unknown]
  - Facial asymmetry [Unknown]
